FAERS Safety Report 7991188-4 (Version None)
Quarter: 2011Q4

REPORT INFORMATION
  Report Type: 
  Country: None (occurrence: None)
  Receive Date: 20111215
  Receipt Date: 20111208
  Transmission Date: 20120403
  Serious: Yes (Death)
  Sender: FDA-Public Use
  Company Number: WAES 1112DEU00031

PATIENT
  Age: 66 Year
  Sex: Male

DRUGS (3)
  1. VORICONAZOLE [Concomitant]
  2. CANCIDAS [Suspect]
     Indication: ASPERGILLOSIS
     Route: 042
  3. AMPHOTERICIN B [Concomitant]

REACTIONS (2)
  - CARDIOPULMONARY FAILURE [None]
  - PNEUMONIA ASPIRATION [None]
